FAERS Safety Report 8510599-1 (Version None)
Quarter: 2012Q3

REPORT INFORMATION
  Report Type: 
  Country: None (occurrence: None)
  Receive Date: 20120716
  Receipt Date: 20120706
  Transmission Date: 20120928
  Serious: Yes (Hospitalization)
  Sender: FDA-Public Use
  Company Number: US-BIOGENIDEC-2012BI024047

PATIENT
  Age: 42 Year
  Sex: Male

DRUGS (1)
  1. AVONEX [Suspect]
     Indication: MULTIPLE SCLEROSIS
     Route: 030
     Dates: start: 20110727

REACTIONS (6)
  - MALAISE [None]
  - HEART RATE INCREASED [None]
  - ASTHENIA [None]
  - BLOOD PRESSURE INCREASED [None]
  - FALL [None]
  - BODY TEMPERATURE INCREASED [None]
